FAERS Safety Report 9282632 (Version 2)
Quarter: 2013Q2

REPORT INFORMATION
  Report Type: Spontaneous
  Country: US (occurrence: None)
  Receive Date: 20101119
  Receipt Date: 20130419
  Transmission Date: 20140414
  Serious: Yes (Life-Threatening)
  Sender: FDA-Public Use
  Company Number: 54973 RSAE102610SC-001

PATIENT
  Age: 8 Month
  Sex: Male

DRUGS (1)
  1. HYLAND^S TEETHING TABLETS [Suspect]
     Indication: TEETHING
     Dosage: 2-3 TABS  X  6 / DAY

REACTIONS (4)
  - Apnoea [None]
  - Convulsion [None]
  - Respiratory arrest [None]
  - Skin discolouration [None]
